FAERS Safety Report 16747700 (Version 1)
Quarter: 2019Q3

REPORT INFORMATION
  Report Type: Spontaneous
  Country: FR (occurrence: FR)
  Receive Date: 20190827
  Receipt Date: 20190827
  Transmission Date: 20191005
  Serious: Yes (Other)
  Sender: FDA-Public Use
  Company Number: FR-MYLANLABS-2019M1079731

PATIENT
  Age: 33 Year
  Sex: Female

DRUGS (1)
  1. BUPIVACAINE MYLAN [Suspect]
     Active Substance: BUPIVACAINE
     Indication: CAESAREAN SECTION
     Dosage: UNK
     Route: 024
     Dates: start: 20190318

REACTIONS (1)
  - Drug ineffective [Not Recovered/Not Resolved]
